FAERS Safety Report 9516045 (Version 1)
Quarter: 2013Q1

REPORT INFORMATION
  Report Type: Spontaneous
  Country: US (occurrence: None)
  Receive Date: 20130305
  Receipt Date: 20130305
  Transmission Date: 20140127
  Serious: Yes (Other)
  Sender: FDA-Public Use
  Company Number: 163-21880-12120014

PATIENT
  Age: 60 Year
  Sex: Male
  Weight: 81.19 kg

DRUGS (10)
  1. REVLIMID [Suspect]
     Indication: CHRONIC LYMPHOCYTIC LEUKAEMIA
     Dosage: 10 MG, 1 IN 1 D,  PO
     Route: 048
     Dates: start: 201210
  2. LOW DOSE ASPIRIN (ACETYLSALICYLIC ACID) (UNKNOWN) [Concomitant]
  3. AFRIN (AFRIN  /OLD FORM/) (SPRAY (NOT INHALATION)) [Concomitant]
  4. ALLOPURINOL (ALLOPURINOL) (UNKNOWN) [Concomitant]
  5. AMLODIPINE (AMLODIPINE) (UNKNOWN) [Concomitant]
  6. FLUTICASONE (FLUTICASONE) (UNKNOWN) [Concomitant]
  7. JANUVIA (SITAGLIPTIN PHOSPHATE) (TABLETS) [Concomitant]
  8. LEVOFLOXACIN (LEVOFLOXACIN) (UNKNOWN) [Concomitant]
  9. OCEAN (OCEAN) (SPRAY (NOT INHALATION) ) [Concomitant]
  10. PROMETHAZINE HYDROCHLORIDE (PROMETHAZINE HYDROCHLORIDE) (UNKNOWN) [Concomitant]

REACTIONS (2)
  - Neutropenia [None]
  - Viral infection [None]
